FAERS Safety Report 14584873 (Version 1)
Quarter: 2018Q1

REPORT INFORMATION
  Report Type: Spontaneous
  Country: US (occurrence: US)
  Receive Date: 20180301
  Receipt Date: 20180301
  Transmission Date: 20180509
  Serious: Yes (Hospitalization, Other)
  Sender: FDA-Public Use
  Company Number: US-AMGEN-USASP2018025299

PATIENT
  Age: 55 Year
  Sex: Female

DRUGS (3)
  1. PROLIA [Suspect]
     Active Substance: DENOSUMAB
     Dosage: UNK, Q6MO
     Route: 065
     Dates: start: 20180221
  2. PROLIA [Suspect]
     Active Substance: DENOSUMAB
     Dosage: UNK, Q6MO
     Route: 065
     Dates: start: 201506
  3. PROLIA [Suspect]
     Active Substance: DENOSUMAB
     Indication: OSTEOPOROSIS
     Dosage: UNK, Q6MO
     Route: 065
     Dates: start: 2010

REACTIONS (5)
  - Wrong technique in product usage process [Unknown]
  - Pathological fracture [Recovering/Resolving]
  - Product administered at inappropriate site [Unknown]
  - Autoimmune disorder [Unknown]
  - Lumbar vertebral fracture [Unknown]

NARRATIVE: CASE EVENT DATE: 201506
